FAERS Safety Report 17468917 (Version 1)
Quarter: 2020Q1

REPORT INFORMATION
  Report Type: Report from Study
  Country: US (occurrence: US)
  Receive Date: 20200227
  Receipt Date: 20200227
  Transmission Date: 20200409
  Serious: No
  Sender: FDA-Public Use
  Company Number: US-AEGERION PHARMACEUTICAL, INC-AEGR004478

PATIENT
  Age: 19 Year
  Sex: Male
  Weight: 59.1 kg

DRUGS (20)
  1. NORCO [Concomitant]
     Active Substance: ACETAMINOPHEN\HYDROCODONE BITARTRATE
     Indication: ARTHROSCOPY
     Dosage: 5-325 MG, PRN
     Route: 048
     Dates: start: 20151104, end: 20161104
  2. METRELEPTIN [Suspect]
     Active Substance: METRELEPTIN
     Indication: LIPODYSTROPHY ACQUIRED
     Dosage: UNK
     Route: 058
     Dates: start: 20110131
  3. METRELEPTIN [Suspect]
     Active Substance: METRELEPTIN
     Dosage: 2.5 MG, QD
     Route: 058
     Dates: start: 20140905
  4. CETRIZINE [Concomitant]
     Active Substance: CETIRIZINE HYDROCHLORIDE
     Indication: URTICARIA
     Dosage: 10 MG, BID
     Route: 048
     Dates: start: 20151113
  5. COMPAZINE                          /00013302/ [Concomitant]
     Active Substance: PROCHLORPERAZINE EDISYLATE
     Indication: ARTHROSCOPY
     Dosage: 5 MG, PRN
     Route: 042
     Dates: start: 20151104, end: 20151106
  6. MELATONIN [Concomitant]
     Active Substance: MELATONIN
     Indication: SLEEP DISORDER
     Dosage: 3 MG, QD
     Route: 048
     Dates: start: 2009
  7. PREDNISONE. [Concomitant]
     Active Substance: PREDNISONE
     Indication: VIRAL INFECTION
     Dosage: 5 MG, AS INSTRUCTED
     Route: 048
     Dates: start: 20141230, end: 20150104
  8. PREDNISONE. [Concomitant]
     Active Substance: PREDNISONE
     Dosage: 5 MG, QD
     Dates: start: 20171005
  9. MORPHINE [Concomitant]
     Active Substance: MORPHINE
     Indication: ARTHROSCOPY
     Dosage: 1.4 MG, PRN
     Route: 042
     Dates: start: 20151104, end: 20151106
  10. ZANTAC [Concomitant]
     Active Substance: RANITIDINE HYDROCHLORIDE
     Indication: URTICARIA
     Dosage: 150 MG, PRN
     Route: 048
     Dates: start: 20130913
  11. AZITHROMYCIN ANHYDROUS. [Concomitant]
     Active Substance: AZITHROMYCIN ANHYDROUS
     Indication: VIRAL INFECTION
     Dosage: 1 PACK AS INSTRUCTED
     Dates: start: 20141230, end: 20150103
  12. TAZORAC [Concomitant]
     Active Substance: TAZAROTENE
     Indication: VIRAL SKIN INFECTION
     Dosage: 1 DF, QD
     Route: 061
     Dates: start: 20161014, end: 2016
  13. DIPHENHYDRAMINE. [Concomitant]
     Active Substance: DIPHENHYDRAMINE
     Indication: PRURITUS
     Dosage: 25 MG, PRN
     Route: 042
     Dates: start: 20151104, end: 20151106
  14. PREDNISONE. [Concomitant]
     Active Substance: PREDNISONE
     Dosage: 15 MG, QD
     Route: 048
     Dates: start: 20161014, end: 20171004
  15. ERGOCALCIFEROL. [Concomitant]
     Active Substance: ERGOCALCIFEROL
     Indication: VITAMIN D DEFICIENCY
     Dosage: 1 CAPSULE QW
     Route: 048
     Dates: start: 20170914
  16. CEFAZOLIN [Concomitant]
     Active Substance: CEFAZOLIN
     Indication: ARTHROSCOPY
     Dosage: 2000 MG, QD
     Route: 042
     Dates: start: 20151104, end: 20151104
  17. DIPHENHYDRAMINE. [Concomitant]
     Active Substance: DIPHENHYDRAMINE
     Indication: URTICARIA
     Dosage: 25 MG, PRN
     Route: 048
     Dates: start: 2017
  18. ATOMOXETINE. [Concomitant]
     Active Substance: ATOMOXETINE HYDROCHLORIDE
     Indication: ATTENTION DEFICIT/HYPERACTIVITY DISORDER
     Dosage: 25 MG, QD
     Route: 048
     Dates: start: 201206
  19. PREDNISONE. [Concomitant]
     Active Substance: PREDNISONE
     Indication: AUTOIMMUNE HEPATITIS
     Dosage: 10 MG, QD
     Route: 048
     Dates: start: 20150909, end: 20161013
  20. FENTANYL. [Concomitant]
     Active Substance: FENTANYL
     Indication: ARTHROSCOPY
     Dosage: 50 ?G, PRN
     Route: 042
     Dates: start: 20161104, end: 20161106

REACTIONS (1)
  - White blood cell count decreased [Not Recovered/Not Resolved]

NARRATIVE: CASE EVENT DATE: 20181018
